FAERS Safety Report 8306386-X (Version None)
Quarter: 2012Q2

REPORT INFORMATION
  Report Type: 
  Country: None (occurrence: None)
  Receive Date: 20120423
  Receipt Date: 20120413
  Transmission Date: 20120825
  Serious: Yes (Hospitalization, Other)
  Sender: FDA-Public Use
  Company Number: US-ELI_LILLY_AND_COMPANY-US201204004940

PATIENT
  Sex: Female
  Weight: 112.47 kg

DRUGS (8)
  1. BYETTA [Suspect]
     Dosage: 10 UG, BID
     Route: 058
     Dates: end: 20090701
  2. LASIX                                   /USA/ [Concomitant]
  3. BUMEX [Concomitant]
     Dosage: UNK
  4. SPIRONOLACTONE [Concomitant]
     Dosage: UNK
  5. BYETTA [Suspect]
     Indication: INSULIN-REQUIRING TYPE 2 DIABETES MELLITUS
     Dosage: 5 UG, BID
     Route: 058
  6. LOTENSIN [Concomitant]
     Indication: INSULIN-REQUIRING TYPE 2 DIABETES MELLITUS
     Dosage: 10 MG, QD
     Route: 048
     Dates: end: 20090701
  7. GLUCOPHAGE                              /USA/ [Concomitant]
     Indication: INSULIN-REQUIRING TYPE 2 DIABETES MELLITUS
     Dosage: 1000 MG, BID
     Route: 048
     Dates: end: 20090701
  8. NPH INSULIN [Concomitant]
     Indication: INSULIN-REQUIRING TYPE 2 DIABETES MELLITUS
     Dosage: UNK

REACTIONS (6)
  - RENAL FAILURE [None]
  - LOSS OF CONSCIOUSNESS [None]
  - ASTHENIA [None]
  - MUSCULAR WEAKNESS [None]
  - HEPATOMEGALY [None]
  - VOMITING [None]
